FAERS Safety Report 4784905-8 (Version None)
Quarter: 2005Q3

REPORT INFORMATION
  Report Type: 
  Country: None (occurrence: None)
  Receive Date: 20050930
  Receipt Date: 20050927
  Transmission Date: 20060218
  Serious: Yes (Other)
  Sender: FDA-Public Use
  Company Number: 2005UW14541

PATIENT
  Age: 65 Year
  Sex: Female

DRUGS (2)
  1. IRESSA [Suspect]
     Route: 048
     Dates: start: 20050601, end: 20050801
  2. TORADOL [Concomitant]
     Indication: PAIN
     Route: 048
     Dates: start: 20050501

REACTIONS (2)
  - INFLAMMATION [None]
  - SKIN DISORDER [None]
